FAERS Safety Report 10494520 (Version 1)
Quarter: 2014Q4

REPORT INFORMATION
  Report Type: Spontaneous
  Country: GB (occurrence: None)
  Receive Date: 20141001
  Receipt Date: 20141001
  Transmission Date: 20150528
  Serious: Yes (Life-Threatening)
  Sender: FDA-Public Use
  Company Number: 2552982

PATIENT
  Age: 84 Year
  Sex: Male

DRUGS (9)
  1. FERROUS SULFATE [Concomitant]
     Active Substance: FERROUS SULFATE\FERROUS SULFATE, DRIED
  2. BICALUTAMIDE. [Concomitant]
     Active Substance: BICALUTAMIDE
  3. FRUSEMIDE [Concomitant]
     Active Substance: FUROSEMIDE
  4. TAMSULOSIN [Concomitant]
     Active Substance: TAMSULOSIN
  5. MEROPENEM. [Suspect]
     Active Substance: MEROPENEM
     Indication: KLEBSIELLA SEPSIS
     Route: 042
     Dates: start: 20140904, end: 20140904
  6. OXYBUTYNIN [Concomitant]
     Active Substance: OXYBUTYNIN
  7. INSULIN HUMAN [Concomitant]
     Active Substance: INSULIN HUMAN
  8. FINASTERIDE. [Concomitant]
     Active Substance: FINASTERIDE
  9. PARACETAMOL [Concomitant]
     Active Substance: ACETAMINOPHEN

REACTIONS (5)
  - Oxygen saturation decreased [None]
  - Tachycardia [None]
  - Depressed level of consciousness [None]
  - Bronchospasm [None]
  - Blood pressure systolic decreased [None]

NARRATIVE: CASE EVENT DATE: 20140904
